FAERS Safety Report 7532933-1 (Version None)
Quarter: 2011Q2

REPORT INFORMATION
  Report Type: 
  Country: None (occurrence: None)
  Receive Date: 20110607
  Receipt Date: 20110607
  Transmission Date: 20111010
  Serious: No
  Sender: FDA-Public Use
  Company Number: None

PATIENT
  Sex: Female

DRUGS (1)
  1. LIPITOR [Suspect]
     Indication: DYSLIPIDAEMIA
     Dosage: ONE TABLET ONCE DAILY PO
     Route: 048
     Dates: start: 20110501, end: 20110531

REACTIONS (2)
  - MYALGIA [None]
  - ARTHRALGIA [None]
